FAERS Safety Report 5495367-X (Version None)
Quarter: 2007Q4

REPORT INFORMATION
  Report Type: 
  Country: None (occurrence: None)
  Receive Date: 20071024
  Receipt Date: 20071023
  Transmission Date: 20080405
  Serious: Yes (Other)
  Sender: FDA-Public Use
  Company Number: US-MERCK-0705USA01923

PATIENT
  Age: 87 Year
  Sex: Female
  Weight: 50 kg

DRUGS (6)
  1. FOSAMAX [Suspect]
     Indication: OSTEOPOROSIS
     Route: 048
     Dates: start: 19960213
  2. FOSAMAX [Suspect]
     Route: 048
     Dates: start: 20050106, end: 20060325
  3. COUMADIN [Concomitant]
     Route: 065
     Dates: start: 20020101, end: 20060101
  4. CEPHALEXIN [Concomitant]
     Route: 065
     Dates: start: 19950101, end: 20070101
  5. ATENOLOL [Concomitant]
     Route: 065
     Dates: start: 20040101, end: 20070101
  6. HYDROCODONE BITARTRATE [Concomitant]
     Route: 065
     Dates: start: 19940101, end: 20070101

REACTIONS (6)
  - ANXIETY [None]
  - BLINDNESS [None]
  - FEAR [None]
  - MACULAR DEGENERATION [None]
  - OSTEOMYELITIS [None]
  - OSTEONECROSIS [None]
